FAERS Safety Report 25469592 (Version 1)
Quarter: 2025Q2

REPORT INFORMATION
  Report Type: Spontaneous
  Country: HR (occurrence: HR)
  Receive Date: 20250623
  Receipt Date: 20250623
  Transmission Date: 20250717
  Serious: Yes (Hospitalization)
  Sender: PFIZER
  Company Number: HR-009507513-2295499

PATIENT
  Sex: Female

DRUGS (3)
  1. CARBOPLATIN [Suspect]
     Active Substance: CARBOPLATIN
     Indication: Triple negative breast cancer
  2. PEMBROLIZUMAB [Suspect]
     Active Substance: PEMBROLIZUMAB
     Indication: Triple negative breast cancer
  3. GEMCITABINE [Suspect]
     Active Substance: GEMCITABINE
     Indication: Triple negative breast cancer

REACTIONS (1)
  - Hepatitis [Unknown]
